FAERS Safety Report 16768342 (Version 1)
Quarter: 2019Q3

REPORT INFORMATION
  Report Type: Spontaneous
  Country: CN (occurrence: CN)
  Receive Date: 20190903
  Receipt Date: 20190903
  Transmission Date: 20191005
  Serious: No
  Sender: FDA-Public Use
  Company Number: CN-BEH-2019106484

PATIENT
  Age: 70 Year
  Sex: Female
  Weight: 70 kg

DRUGS (1)
  1. ALBUMINAR-20 [Suspect]
     Active Substance: ALBUMIN HUMAN
     Indication: CORONARY ARTERY DISEASE
     Dosage: 10 GRAM, TOT
     Route: 041
     Dates: start: 20190808, end: 20190808

REACTIONS (2)
  - Rash [Recovering/Resolving]
  - Pruritus [Recovering/Resolving]

NARRATIVE: CASE EVENT DATE: 20190808
